FAERS Safety Report 11691963 (Version 1)
Quarter: 2015Q4

REPORT INFORMATION
  Report Type: Report from Study
  Country: ZW (occurrence: ZW)
  Receive Date: 20151103
  Receipt Date: 20151103
  Transmission Date: 20160304
  Serious: Yes (Other)
  Sender: FDA-Public Use
  Company Number: ZW-BRISTOL-MYERS SQUIBB COMPANY-18972091

PATIENT
  Age: 31 Year
  Sex: Female
  Weight: 49.9 kg

DRUGS (5)
  1. LAMIVUDINE AND ZIDOVUDINE [Concomitant]
     Active Substance: LAMIVUDINE\ZIDOVUDINE
     Indication: HIV INFECTION
     Dosage: 1 DF, BID
     Route: 048
     Dates: start: 20080611, end: 20121002
  2. LOPINAVIR + RITONAVIR [Concomitant]
     Active Substance: LOPINAVIR\RITONAVIR
     Indication: VIROLOGIC FAILURE
     Dosage: 1 DF, BID
     Route: 048
     Dates: start: 20080611, end: 20130505
  3. EFAVIRENZ [Suspect]
     Active Substance: EFAVIRENZ
     Indication: HIV INFECTION
     Dosage: 600 MG, UNK
     Route: 048
     Dates: start: 20110824, end: 20121002
  4. EMTRICITABINE W/TENOFOVIR DISOPROXIL FUMARATE [Concomitant]
     Active Substance: EMTRICITABINE\TENOFOVIR DISOPROXIL
     Indication: VIROLOGIC FAILURE
     Dosage: 1 DF, UNK
     Route: 048
     Dates: start: 20121002
  5. ATAZANAVIR SULFATE [Suspect]
     Active Substance: ATAZANAVIR SULFATE
     Indication: VIROLOGIC FAILURE
     Dosage: 300 MG, UNK
     Route: 048
     Dates: start: 20121002, end: 20130304

REACTIONS (3)
  - Foetal death [Unknown]
  - Maternal exposure during pregnancy [Recovered/Resolved]
  - Abortion threatened [Recovered/Resolved]

NARRATIVE: CASE EVENT DATE: 20130506
